FAERS Safety Report 20652602 (Version 1)
Quarter: 2022Q1

REPORT INFORMATION
  Report Type: Spontaneous
  Country: FR (occurrence: FR)
  Receive Date: 20220330
  Receipt Date: 20220330
  Transmission Date: 20220424
  Serious: Yes (Congenital Anomaly, Other)
  Sender: FDA-Public Use
  Company Number: FR-ABBVIE-22K-056-4337573-00

PATIENT
  Sex: Female

DRUGS (1)
  1. VALPROATE SODIUM [Suspect]
     Active Substance: VALPROATE SODIUM
     Indication: Maternal exposure timing unspecified
     Route: 064

REACTIONS (52)
  - Cephalhaematoma [Unknown]
  - Balance disorder [Unknown]
  - Gait disturbance [Unknown]
  - Speech disorder developmental [Unknown]
  - Learning disorder [Unknown]
  - Disturbance in attention [Unknown]
  - Attention deficit hyperactivity disorder [Unknown]
  - Personal relationship issue [Unknown]
  - Cognitive disorder [Unknown]
  - Psychiatric symptom [Unknown]
  - Intellectual disability [Unknown]
  - Developmental delay [Unknown]
  - Memory impairment [Unknown]
  - Kyphosis [Unknown]
  - Lordosis [Unknown]
  - Dysmorphism [Unknown]
  - Nose deformity [Unknown]
  - Lip disorder [Unknown]
  - Prognathism [Unknown]
  - Dyslexia [Unknown]
  - Clinodactyly [Unknown]
  - Plagiocephaly [Unknown]
  - Finger deformity [Unknown]
  - Tooth malformation [Unknown]
  - Dysgraphia [Unknown]
  - Tremor [Unknown]
  - Educational problem [Unknown]
  - Asthma [Unknown]
  - Loss of personal independence in daily activities [Unknown]
  - Dissociation [Unknown]
  - Scarlet fever [Unknown]
  - Nasopharyngeal polyp [Unknown]
  - Tooth disorder [Unknown]
  - Heterophoria [Unknown]
  - Sinusitis [Unknown]
  - Tonsillitis [Unknown]
  - Nasopharyngitis [Unknown]
  - Laryngitis [Unknown]
  - Ear infection [Unknown]
  - Aggression [Unknown]
  - Crying [Unknown]
  - Anxiety [Unknown]
  - Behaviour disorder [Unknown]
  - Depressed mood [Unknown]
  - Sluggishness [Unknown]
  - Mite allergy [Unknown]
  - Seasonal allergy [Unknown]
  - Fatigue [Unknown]
  - Sleep disorder [Unknown]
  - Agitation [Unknown]
  - Unevaluable event [Unknown]
  - Foetal exposure during pregnancy [Unknown]
